FAERS Safety Report 12104198 (Version 1)
Quarter: 2016Q1

REPORT INFORMATION
  Report Type: Other
  Country: GB (occurrence: GB)
  Receive Date: 20160223
  Receipt Date: 20160223
  Transmission Date: 20160526
  Serious: Yes (Hospitalization)
  Sender: FDA-Public Use
  Company Number: GB-CIPLA LTD.-2016GB01236

PATIENT

DRUGS (6)
  1. TINZAPARINSODIUM [Concomitant]
     Indication: EMBOLISM VENOUS
     Dosage: 12000 IU, QD, 14000UNITS/0.7ML
     Route: 058
     Dates: start: 20160126
  2. CAPECITABINE. [Suspect]
     Active Substance: CAPECITABINE
     Indication: OESOPHAGEAL CARCINOMA
     Dosage: 1100 MG, UNK
     Route: 048
     Dates: start: 20160126, end: 20160129
  3. METOCLOPRAMIDE. [Concomitant]
     Active Substance: METOCLOPRAMIDE
     Indication: NAUSEA
     Dosage: 10 MG, TID, AS NECESSARY
     Route: 048
     Dates: start: 20160126
  4. EPIRUBICIN [Suspect]
     Active Substance: EPIRUBICIN
     Indication: OESOPHAGEAL CARCINOMA
     Dosage: 90 MG, 100MG/50ML
     Route: 042
     Dates: start: 20160126, end: 20160129
  5. OXALIPLATIN. [Suspect]
     Active Substance: OXALIPLATIN
     Indication: OESOPHAGEAL CARCINOMA
     Dosage: 240 MG, 200MG/40ML
     Route: 042
     Dates: start: 20160126, end: 20160129
  6. LOPERAMIDE [Concomitant]
     Active Substance: LOPERAMIDE
     Indication: DIARRHOEA
     Dosage: 2 MG, AS DIRECTED
     Route: 048
     Dates: start: 20160126

REACTIONS (1)
  - Neutropenic sepsis [Recovered/Resolved]

NARRATIVE: CASE EVENT DATE: 20160126
